FAERS Safety Report 13897830 (Version 2)
Quarter: 2017Q3

REPORT INFORMATION
  Report Type: Spontaneous
  Country: GB (occurrence: GB)
  Receive Date: 20170823
  Receipt Date: 20170825
  Transmission Date: 20171127
  Serious: Yes (Death, Hospitalization, Other)
  Sender: FDA-Public Use
  Company Number: GB-TEVA-761945ACC

PATIENT
  Sex: Male

DRUGS (11)
  1. GANCICLOVIR. [Suspect]
     Active Substance: GANCICLOVIR
     Indication: PRODUCT USED FOR UNKNOWN INDICATION
     Route: 065
  2. ZAVICEFTA (ASTRAZENECA) [Suspect]
     Active Substance: AVIBACTAM SODIUM\CEFTAZIDIME
     Dosage: 0.75G/0.1875G EVERY 48 HOURS
     Route: 065
  3. VANCOMYCIN [Concomitant]
     Active Substance: VANCOMYCIN
     Indication: CYTOMEGALOVIRUS INFECTION
     Route: 048
  4. VALGANCICLOVIR. [Concomitant]
     Active Substance: VALGANCICLOVIR
     Indication: ASCITES
     Route: 048
  5. ZAVICEFTA (ASTRAZENECA) [Suspect]
     Active Substance: AVIBACTAM SODIUM\CEFTAZIDIME
     Dosage: CEFTAZIDIME PENTAHYDRATE 750MG/ AVIBACTAM SODIUM 187.5MG EVERY 24 HOURS BASED ON GFR 14ML/MIN
     Route: 065
  6. VANCOMYCIN [Concomitant]
     Active Substance: VANCOMYCIN
     Indication: ASCITES
     Route: 042
  7. AMBISOME [Suspect]
     Active Substance: AMPHOTERICIN B
     Dosage: 3 MILLIGRAM DAILY; 210MG
     Route: 065
  8. COLOMYCIN [Suspect]
     Active Substance: COLISTIN
     Indication: PATHOGEN RESISTANCE
     Route: 042
  9. VALGANCICLOVIR. [Concomitant]
     Active Substance: VALGANCICLOVIR
     Indication: CYTOMEGALOVIRUS INFECTION
     Route: 042
  10. AMBISOME [Suspect]
     Active Substance: AMPHOTERICIN B
     Dosage: SINGLE TEST DOSE
     Route: 065
  11. MERO [Concomitant]
     Route: 042

REACTIONS (10)
  - Cerebrovascular accident [Fatal]
  - Hepatic encephalopathy [Unknown]
  - Underdose [Unknown]
  - Ascites [Unknown]
  - Pseudomonas infection [Unknown]
  - Renal transplant failure [Unknown]
  - Liver function test abnormal [Unknown]
  - Coma scale abnormal [Unknown]
  - Viral load increased [Unknown]
  - White blood cell count increased [Unknown]

NARRATIVE: CASE EVENT DATE: 20170309
